FAERS Safety Report 9557211 (Version 1)
Quarter: 2013Q3

REPORT INFORMATION
  Report Type: Report from Study
  Country: US (occurrence: US)
  Receive Date: 20130926
  Receipt Date: 20130926
  Transmission Date: 20140515
  Serious: Yes (Hospitalization)
  Sender: FDA-Public Use
  Company Number: US-BAXTER-2013BAX037640

PATIENT
  Sex: Female

DRUGS (3)
  1. SEVOFLURANE, USP [Suspect]
     Indication: MAINTENANCE OF ANAESTHESIA
  2. LACTATED RINGER^S AND 5% DEXTROSE INJECTION, USP [Suspect]
     Indication: PRODUCT USED FOR UNKNOWN INDICATION
  3. PROPOFOL [Suspect]
     Indication: INDUCTION OF ANAESTHESIA
     Dosage: 2-2.5 MG/KG

REACTIONS (1)
  - Procedural pain [Unknown]
